FAERS Safety Report 24787679 (Version 1)
Quarter: 2024Q4

REPORT INFORMATION
  Report Type: Spontaneous
  Country: PT (occurrence: PT)
  Receive Date: 20241230
  Receipt Date: 20241230
  Transmission Date: 20250114
  Serious: Yes (Life-Threatening, Hospitalization)
  Sender: STRIDES
  Company Number: PT-STRIDES ARCOLAB LIMITED-2024SP017098

PATIENT
  Age: 66 Year
  Sex: Male

DRUGS (6)
  1. BUSPIRONE HYDROCHLORIDE [Interacting]
     Active Substance: BUSPIRONE HYDROCHLORIDE
     Indication: Depressive symptom
     Dosage: 5 MILLIGRAM (PRESCRIBED DOSE)
     Route: 065
  2. BUSPIRONE HYDROCHLORIDE [Interacting]
     Active Substance: BUSPIRONE HYDROCHLORIDE
     Dosage: UNK (ADMINISTERED FOR INTENTIONAL SELF-POISONING)
     Route: 065
  3. ZOLPIDEM [Interacting]
     Active Substance: ZOLPIDEM TARTRATE
     Indication: Depressive symptom
     Dosage: 10 MILLIGRAM (PRESCRIBED DOSE)
     Route: 065
  4. ZOLPIDEM [Interacting]
     Active Substance: ZOLPIDEM TARTRATE
     Dosage: UNK (ADMINISTERED FOR INTENTIONAL SELF-POISONING)
     Route: 065
  5. AMITRIPTYLINE [Interacting]
     Active Substance: AMITRIPTYLINE
     Indication: Depressive symptom
     Dosage: 25 MILLIGRAM (PRESCRIBED DOSE)
     Route: 065
  6. AMITRIPTYLINE [Interacting]
     Active Substance: AMITRIPTYLINE
     Dosage: UNK (ADMINISTERED FOR INTENTIONAL SELF-POISONING)
     Route: 065

REACTIONS (7)
  - Hyperlactacidaemia [Recovered/Resolved]
  - Respiratory failure [Recovered/Resolved]
  - Hypoxia [Recovered/Resolved]
  - Drug interaction [Recovered/Resolved]
  - Serotonin syndrome [Recovered/Resolved]
  - Poisoning deliberate [Recovered/Resolved]
  - Off label use [Unknown]
